FAERS Safety Report 25031749 (Version 1)
Quarter: 2025Q1

REPORT INFORMATION
  Report Type: Spontaneous
  Country: US (occurrence: None)
  Receive Date: 20250303
  Receipt Date: 20250303
  Transmission Date: 20250409
  Serious: Yes (Hospitalization)
  Sender: FDA-CTU
  Company Number: None

PATIENT
  Sex: Female

DRUGS (4)
  1. GENGRAF [Suspect]
     Active Substance: CYCLOSPORINE
     Indication: Liver transplant
     Dosage: TAKE 4 CAPSULES BY MOUTH EVERY 12 HOURS. OR AS DIRECTED BY TRANSPLANT.
     Route: 048
     Dates: start: 20160513
  2. AZITHR0MYCIN [Concomitant]
  3. INTRAR0SA [Concomitant]
  4. MET0PR0L TAR [Concomitant]

REACTIONS (4)
  - Tremor [None]
  - Laboratory test abnormal [None]
  - Hair growth abnormal [None]
  - Therapy interrupted [None]
